FAERS Safety Report 9772665 (Version 1)
Quarter: 2013Q4

REPORT INFORMATION
  Report Type: Spontaneous
  Country: US (occurrence: US)
  Receive Date: 20131219
  Receipt Date: 20131219
  Transmission Date: 20140711
  Serious: Yes (Disabling, Other)
  Sender: FDA-Public Use
  Company Number: US-PFIZER INC-2013359192

PATIENT
  Age: 56 Year
  Sex: Female

DRUGS (3)
  1. DEPO-ESTRADIOL [Suspect]
     Indication: HORMONE THERAPY
     Dosage: 1 ML, ONCE A WEEK
     Dates: start: 1982
  2. PREMARIN [Suspect]
     Indication: HORMONE THERAPY
     Dosage: UNK, 1X/DAY
     Dates: start: 1977
  3. ATRIPLA [Concomitant]
     Indication: HIV INFECTION
     Dosage: UNK
     Dates: start: 2008

REACTIONS (1)
  - Infection [Unknown]
